FAERS Safety Report 13226068 (Version 1)
Quarter: 2017Q1

REPORT INFORMATION
  Report Type: Spontaneous
  Country: US (occurrence: US)
  Receive Date: 20170213
  Receipt Date: 20170213
  Transmission Date: 20170428
  Serious: No
  Sender: FDA-Public Use
  Company Number: None

PATIENT
  Age: 50 Year
  Sex: Male
  Weight: 76.5 kg

DRUGS (3)
  1. GLEEVEC [Suspect]
     Active Substance: IMATINIB MESYLATE
     Indication: GASTROINTESTINAL STROMAL TUMOUR
     Dosage: ?          QUANTITY:30 TABLET(S);?
     Route: 048
     Dates: start: 20170202, end: 20170205
  2. MULTI VITAMIN [Concomitant]
     Active Substance: VITAMINS
  3. EBOXAPARIN [Concomitant]

REACTIONS (4)
  - Fatigue [None]
  - Nausea [None]
  - Diarrhoea [None]
  - Drug effect decreased [None]

NARRATIVE: CASE EVENT DATE: 20170209
